FAERS Safety Report 7055111-1 (Version None)
Quarter: 2010Q4

REPORT INFORMATION
  Report Type: 
  Country: None (occurrence: None)
  Receive Date: 20101021
  Receipt Date: 20101012
  Transmission Date: 20110411
  Serious: Yes (Hospitalization)
  Sender: FDA-Public Use
  Company Number: DE-JNJFOC-20101003182

PATIENT
  Age: 57 Year
  Sex: Female

DRUGS (2)
  1. TAVANIC [Suspect]
     Indication: PYREXIA
     Route: 048
  2. TAVANIC [Suspect]
     Indication: PYELONEPHRITIS
     Route: 048

REACTIONS (4)
  - ANXIETY [None]
  - HALLUCINATION [None]
  - PANIC ATTACK [None]
  - SLEEP DISORDER [None]
